FAERS Safety Report 6449168-6 (Version None)
Quarter: 2009Q4

REPORT INFORMATION
  Report Type: 
  Country: None (occurrence: None)
  Receive Date: 20091116
  Receipt Date: 20091029
  Transmission Date: 20100525
  Serious: Yes (Other)
  Sender: FDA-Public Use
  Company Number: 1000009596

PATIENT
  Age: 32 Year
  Sex: Female

DRUGS (2)
  1. ESCITALOPRAM [Suspect]
     Indication: DEPRESSION
     Dosage: 10 MG (10 MG), ORAL
     Route: 048
  2. METOCLOPRAMIDE [Suspect]
     Indication: MIGRAINE
     Dosage: 10 MG, INTRAVENOUS
     Route: 042

REACTIONS (3)
  - DRUG INTERACTION [None]
  - OCULOGYRIC CRISIS [None]
  - SEROTONIN SYNDROME [None]
